FAERS Safety Report 21866349 (Version 2)
Quarter: 2023Q1

REPORT INFORMATION
  Report Type: Spontaneous
  Country: US (occurrence: US)
  Receive Date: 20230116
  Receipt Date: 20230126
  Transmission Date: 20230417
  Serious: Yes (Other)
  Sender: FDA-Public Use
  Company Number: US-PFIZER INC-202300013872

PATIENT
  Age: 87 Year
  Sex: Female

DRUGS (1)
  1. METHYLPREDNISOLONE SODIUM SUCCINATE [Suspect]
     Active Substance: METHYLPREDNISOLONE SODIUM SUCCINATE
     Indication: Endocrine ophthalmopathy
     Dosage: 1 G, 1X/DAY FOR 3 DAYS
     Route: 042

REACTIONS (4)
  - Therapeutic product effect incomplete [Unknown]
  - Hallucination [Unknown]
  - Blood glucose increased [Unknown]
  - Hypertension [Unknown]
